FAERS Safety Report 5523308-5 (Version None)
Quarter: 2007Q4

REPORT INFORMATION
  Report Type: 
  Country: None (occurrence: None)
  Receive Date: 20071121
  Receipt Date: 20071121
  Transmission Date: 20080405
  Serious: Yes (Disabling)
  Sender: FDA-Public Use
  Company Number: A0695556A

PATIENT
  Age: 20 Year
  Sex: Male

DRUGS (3)
  1. NICORETTE (MINT) [Suspect]
     Indication: SMOKING CESSATION THERAPY
     Dosage: 4MG UNKNOWN
     Route: 002
     Dates: start: 20071119, end: 20071119
  2. TYLENOL [Concomitant]
  3. ADVIL LIQUI-GELS [Concomitant]

REACTIONS (8)
  - DIZZINESS [None]
  - GASTRIC ULCER [None]
  - HAEMATEMESIS [None]
  - INSOMNIA [None]
  - INTENTIONAL DRUG MISUSE [None]
  - MALAISE [None]
  - NAUSEA [None]
  - STOMACH DISCOMFORT [None]
